FAERS Safety Report 19397092 (Version 7)
Quarter: 2021Q3

REPORT INFORMATION
  Report Type: Spontaneous
  Country: US (occurrence: US)
  Receive Date: 20210610
  Receipt Date: 20210930
  Transmission Date: 20211014
  Serious: Yes (Hospitalization, Other)
  Sender: FDA-Public Use
  Company Number: US-SUN PHARMACEUTICAL INDUSTRIES LTD-2021R1-299844

PATIENT
  Sex: Female
  Weight: 65.31 kg

DRUGS (7)
  1. EPOPROSTENOL. [Suspect]
     Active Substance: EPOPROSTENOL
     Dosage: 50 NG/KG/MIN CONTINUOUS
     Route: 042
     Dates: start: 20210422
  2. ADEMPAS [Concomitant]
     Active Substance: RIOCIGUAT
     Indication: PRODUCT USED FOR UNKNOWN INDICATION
     Route: 065
  3. EPOPROSTENOL. [Suspect]
     Active Substance: EPOPROSTENOL
     Indication: PULMONARY ARTERIAL HYPERTENSION
     Dosage: 50 NG/KG/MIN CONTINUOUS
     Route: 042
     Dates: start: 20210422
  4. OPSUMIT [Concomitant]
     Active Substance: MACITENTAN
     Indication: PRODUCT USED FOR UNKNOWN INDICATION
     Route: 065
  5. ELIQUIS [Concomitant]
     Active Substance: APIXABAN
     Indication: PRODUCT USED FOR UNKNOWN INDICATION
     Route: 065
  6. EPOPROSTENOL. [Suspect]
     Active Substance: EPOPROSTENOL
     Dosage: 50 NG/KG/MIN CONTINUOUS
     Route: 042
     Dates: start: 20210422
  7. EPOPROSTENOL. [Suspect]
     Active Substance: EPOPROSTENOL
     Dosage: 50 NG/KG/MIN CONTINUOUS
     Route: 042
     Dates: start: 20210422

REACTIONS (12)
  - Rectal discharge [Unknown]
  - Arthritis [Unknown]
  - Flushing [Unknown]
  - Diarrhoea [Unknown]
  - Vascular device infection [Unknown]
  - Thrombosis [Unknown]
  - Pain in jaw [Unknown]
  - Arthralgia [Unknown]
  - Nasopharyngitis [Unknown]
  - Fall [Unknown]
  - Concussion [Unknown]
  - Cellulitis [Unknown]
